FAERS Safety Report 7836629-8 (Version None)
Quarter: 2011Q4

REPORT INFORMATION
  Report Type: 
  Country: None (occurrence: None)
  Receive Date: 20111024
  Receipt Date: 20110707
  Transmission Date: 20120403
  Serious: No
  Sender: FDA-Public Use
  Company Number: US-ABBOTT-11P-163-0838169-00

PATIENT
  Sex: Female
  Weight: 54.48 kg

DRUGS (4)
  1. LUPRON DEPOT [Suspect]
     Indication: ENDOMETRIOSIS
     Route: 030
     Dates: start: 20110419
  2. FLEXERIL [Concomitant]
     Indication: PAIN
  3. MOTRIN [Concomitant]
     Indication: PAIN
  4. PERCOCET [Concomitant]
     Indication: PAIN

REACTIONS (10)
  - PYREXIA [None]
  - MUSCLE TIGHTNESS [None]
  - PRURITUS [None]
  - OEDEMA PERIPHERAL [None]
  - MUSCULOSKELETAL DISCOMFORT [None]
  - NEURALGIA [None]
  - ANXIETY [None]
  - BRUXISM [None]
  - MOOD SWINGS [None]
  - SKIN TIGHTNESS [None]
